FAERS Safety Report 16098781 (Version 2)
Quarter: 2019Q4

REPORT INFORMATION
  Report Type: Spontaneous
  Country: BG (occurrence: BG)
  Receive Date: 20190321
  Receipt Date: 20191115
  Transmission Date: 20200122
  Serious: Yes (Hospitalization)
  Sender: FDA-Public Use
  Company Number: BG-SCIEGEN PHARMACEUTICALS INC-2019SCILIT00119

PATIENT

DRUGS (3)
  1. AMLODIPINE [Concomitant]
     Active Substance: AMLODIPINE BESYLATE
  2. IRBESARTAN TABLETS [Suspect]
     Active Substance: IRBESARTAN
  3. MOXONIDINE [Concomitant]
     Active Substance: MOXONIDINE

REACTIONS (1)
  - Malignant melanoma stage I [Unknown]
